FAERS Safety Report 5239202-3 (Version None)
Quarter: 2007Q1

REPORT INFORMATION
  Report Type: 
  Country: None (occurrence: None)
  Receive Date: 20061208
  Receipt Date: 20050927
  Transmission Date: 20070707
  Serious: Yes (Other)
  Sender: FDA-Public Use
  Company Number: 2005UW13525

PATIENT
  Age: 77 Year
  Sex: Female
  Weight: 43.998 kg

DRUGS (4)
  1. CRESTOR [Suspect]
     Indication: BLOOD CHOLESTEROL INCREASED
     Dosage: 10 MG DAILY PO
     Route: 048
     Dates: start: 20050701
  2. PLAVIX [Concomitant]
  3. DIOVAN [Concomitant]
  4. ALEVE [Concomitant]

REACTIONS (4)
  - DYSGEUSIA [None]
  - GLOSSODYNIA [None]
  - TONGUE COATED [None]
  - WEIGHT DECREASED [None]
